FAERS Safety Report 4806129-8 (Version None)
Quarter: 2005Q4

REPORT INFORMATION
  Report Type: 
  Country: None (occurrence: None)
  Receive Date: 20051019
  Receipt Date: 20051019
  Transmission Date: 20060501
  Serious: Yes (Other)
  Sender: FDA-Public Use
  Company Number: None

PATIENT

DRUGS (1)
  1. METHADOSE [Suspect]
     Indication: PAIN
     Dosage: 5 AND 10MG THREE DAILY PO
     Route: 048
     Dates: start: 20050929, end: 20051010

REACTIONS (1)
  - DRUG INEFFECTIVE [None]
